FAERS Safety Report 25933127 (Version 2)
Quarter: 2025Q4

REPORT INFORMATION
  Report Type: Spontaneous
  Country: AU (occurrence: AU)
  Receive Date: 20251017
  Receipt Date: 20251119
  Transmission Date: 20260117
  Serious: Yes (Life-Threatening, Hospitalization, Other)
  Sender: BIOVITRUM
  Company Number: AU-BIOVITRUM-2025-AU-014196

PATIENT
  Age: 32 Year
  Sex: Female

DRUGS (6)
  1. ANAKINRA [Suspect]
     Active Substance: ANAKINRA
     Indication: Still^s disease
     Dosage: DAILY FOR 10 DAYS
     Route: 058
     Dates: start: 20251003
  2. ANAKINRA [Suspect]
     Active Substance: ANAKINRA
     Indication: Haemophagocytic lymphohistiocytosis
     Dosage: QID (FOUR TIMES A DAY) DOSING
     Route: 058
     Dates: start: 20251014
  3. ANAKINRA [Suspect]
     Active Substance: ANAKINRA
     Dosage: BD
     Route: 058
     Dates: start: 20251028
  4. METHYLPREDNISOLONE [Suspect]
     Active Substance: METHYLPREDNISOLONE
     Indication: Still^s disease
     Dosage: 500 MG DAILY (3 DAYS)
     Route: 042
  5. METHYLPREDNISOLONE [Suspect]
     Active Substance: METHYLPREDNISOLONE
     Indication: Haemophagocytic lymphohistiocytosis
     Dosage: 1 G ? 3 DOSES
     Route: 042
     Dates: start: 20251001, end: 20251003
  6. PREDNISOLONE [Concomitant]
     Active Substance: PREDNISOLONE
     Indication: Product used for unknown indication
     Dosage: 50 MG FOR 1 WEEK
     Dates: start: 20251004, end: 20251013

REACTIONS (4)
  - Condition aggravated [Unknown]
  - Off label use [Unknown]
  - Still^s disease [Unknown]
  - Haemophagocytic lymphohistiocytosis [Unknown]
